FAERS Safety Report 21606516 (Version 1)
Quarter: 2022Q4

REPORT INFORMATION
  Report Type: Spontaneous
  Country: TW (occurrence: TW)
  Receive Date: 20221117
  Receipt Date: 20221117
  Transmission Date: 20230112
  Serious: Yes (Hospitalization, Other)
  Sender: FDA-Public Use
  Company Number: TW-BRISTOL-MYERS SQUIBB COMPANY-2022-138017

PATIENT
  Age: 62 Year
  Sex: Female
  Weight: 43 kg

DRUGS (1)
  1. OPDIVO [Suspect]
     Active Substance: NIVOLUMAB
     Indication: Transitional cell carcinoma
     Route: 042
     Dates: start: 20220523

REACTIONS (4)
  - Diabetic ketoacidosis [Not Recovered/Not Resolved]
  - Prescribed underdose [Unknown]
  - Pyrexia [Unknown]
  - Still^s disease [Unknown]

NARRATIVE: CASE EVENT DATE: 20221008
